FAERS Safety Report 8616245-0 (Version None)
Quarter: 2012Q3

REPORT INFORMATION
  Report Type: 
  Country: None (occurrence: None)
  Receive Date: 20120823
  Receipt Date: 20120821
  Transmission Date: 20120928
  Serious: Yes (Hospitalization)
  Sender: FDA-Public Use
  Company Number: NL-ROCHE-1105064

PATIENT
  Age: 59 Year
  Sex: Female
  Weight: 70 kg

DRUGS (2)
  1. BONIVA [Suspect]
     Indication: OSTEOPOROSIS
     Route: 048
     Dates: start: 20050101, end: 20120301
  2. FLUTICASONE PROPIONATE [Concomitant]
     Route: 055
     Dates: start: 20070101

REACTIONS (5)
  - MUSCULOSKELETAL PAIN [None]
  - FATIGUE [None]
  - HYPERTENSION [None]
  - HEART RATE INCREASED [None]
  - ECZEMA [None]
